FAERS Safety Report 5515412-2 (Version None)
Quarter: 2007Q4

REPORT INFORMATION
  Report Type: 
  Country: None (occurrence: None)
  Receive Date: 20071113
  Receipt Date: 20070416
  Transmission Date: 20080405
  Serious: No
  Sender: FDA-Public Use
  Company Number: A0639052A

PATIENT
  Age: 74 Year
  Sex: Male
  Weight: 98.2 kg

DRUGS (15)
  1. COREG [Suspect]
     Dosage: 25MG TWICE PER DAY
     Route: 048
     Dates: start: 20000101
  2. LANOXIN [Concomitant]
  3. LASIX [Concomitant]
  4. UNKNOWN MEDICATION [Concomitant]
  5. MICRO-K [Concomitant]
  6. PLAVIX [Concomitant]
  7. FLOMAX [Concomitant]
  8. PRAVACHOL [Concomitant]
  9. REQUIP [Concomitant]
  10. URECHOLINE [Concomitant]
  11. COMBIVENT [Concomitant]
  12. FLONASE [Concomitant]
  13. ALBUTEROL [Concomitant]
  14. AMBIEN [Concomitant]
  15. ASPIRIN [Concomitant]

REACTIONS (6)
  - DIZZINESS [None]
  - DYSPNOEA [None]
  - FATIGUE [None]
  - HEADACHE [None]
  - HEART RATE DECREASED [None]
  - NECK PAIN [None]
